FAERS Safety Report 16780308 (Version 1)
Quarter: 2019Q3

REPORT INFORMATION
  Report Type: Spontaneous
  Country: PL (occurrence: PL)
  Receive Date: 20190906
  Receipt Date: 20190906
  Transmission Date: 20191005
  Serious: Yes (Hospitalization)
  Sender: FDA-Public Use
  Company Number: PHHY2019PL204662

PATIENT
  Age: 38 Year
  Sex: Male

DRUGS (4)
  1. IFOSFAMIDE. [Suspect]
     Active Substance: IFOSFAMIDE
     Indication: SARCOMA
     Dosage: UNK, (FOUR COURSES)
     Route: 065
     Dates: start: 201701, end: 201703
  2. DOCETAXEL. [Suspect]
     Active Substance: DOCETAXEL
     Indication: SARCOMA
     Dosage: UNK
     Route: 065
     Dates: start: 20170414, end: 20171003
  3. DOXORUBICIN [Suspect]
     Active Substance: DOXORUBICIN
     Indication: SARCOMA
     Dosage: UNK, (FOUR COURSES)
     Route: 065
     Dates: start: 201701, end: 201703
  4. GEMCITABINE. [Suspect]
     Active Substance: GEMCITABINE
     Indication: SARCOMA
     Dosage: UNK
     Route: 065
     Dates: start: 20170414, end: 20171003

REACTIONS (4)
  - Product use in unapproved indication [Unknown]
  - Metastases to lung [Unknown]
  - Malignant neoplasm progression [Unknown]
  - Sarcoma [Recovering/Resolving]
